FAERS Safety Report 20980701 (Version 5)
Quarter: 2024Q1

REPORT INFORMATION
  Report Type: Spontaneous
  Country: US (occurrence: US)
  Receive Date: 20220620
  Receipt Date: 20240105
  Transmission Date: 20240410
  Serious: No
  Sender: FDA-Public Use
  Company Number: US-BRISTOL-MYERS SQUIBB COMPANY-2022-055301

PATIENT
  Age: 75 Year
  Sex: Female

DRUGS (3)
  1. ORENCIA [Suspect]
     Active Substance: ABATACEPT
     Indication: Rheumatoid arthritis
     Route: 058
     Dates: start: 20211026
  2. ORENCIA [Suspect]
     Active Substance: ABATACEPT
     Route: 058
  3. HYDROXYCHLOROQUINE DIPHOSPHATE [Suspect]
     Active Substance: HYDROXYCHLOROQUINE DIPHOSPHATE
     Indication: Product used for unknown indication

REACTIONS (6)
  - Joint swelling [Unknown]
  - Arthralgia [Not Recovered/Not Resolved]
  - Tremor [Unknown]
  - Skin discolouration [Unknown]
  - Visual impairment [Unknown]
  - Drug ineffective [Unknown]
